FAERS Safety Report 8081858-4 (Version None)
Quarter: 2012Q1

REPORT INFORMATION
  Report Type: 
  Country: None (occurrence: None)
  Receive Date: 20120130
  Receipt Date: 20120123
  Transmission Date: 20120608
  Serious: No
  Sender: FDA-Public Use
  Company Number: US-BAYER-2012-008401

PATIENT
  Sex: Male

DRUGS (1)
  1. ALEVE (CAPLET) [Suspect]
     Dosage: 2 U, ONCE
     Route: 048
     Dates: start: 20120115, end: 20120115

REACTIONS (1)
  - ARTHRALGIA [None]
